FAERS Safety Report 7167411-5 (Version None)
Quarter: 2010Q4

REPORT INFORMATION
  Report Type: 
  Country: None (occurrence: None)
  Receive Date: 20101216
  Receipt Date: 20091123
  Transmission Date: 20110411
  Serious: No
  Sender: FDA-Public Use
  Company Number: A0824211A

PATIENT
  Age: 60 Year
  Sex: Male

DRUGS (1)
  1. NICOTINE POLACRILEX [Suspect]

REACTIONS (3)
  - DENTAL CARIES [None]
  - DRUG ADMINISTRATION ERROR [None]
  - TOOTH DISORDER [None]
